FAERS Safety Report 4376351-6 (Version None)
Quarter: 2004Q2

REPORT INFORMATION
  Report Type: 
  Country: None (occurrence: None)
  Receive Date: 20040612
  Receipt Date: 20040603
  Transmission Date: 20050107
  Serious: Yes (Hospitalization)
  Sender: FDA-Public Use
  Company Number: GB-JNJFOC-20040601092

PATIENT
  Age: 53 Year
  Sex: Male
  Weight: 140 kg

DRUGS (9)
  1. REMICADE [Suspect]
     Indication: RHEUMATOID ARTHRITIS
     Route: 042
  2. METHOTREXATE [Concomitant]
     Route: 049
  3. MORPHINE [Concomitant]
     Route: 049
  4. PREDNISOLONE [Concomitant]
     Route: 049
  5. MELOXICAM [Concomitant]
  6. NIFEDIPINE [Concomitant]
  7. FOSAMAX [Concomitant]
  8. SENNA [Concomitant]
  9. LACTULOSE [Concomitant]

REACTIONS (6)
  - CHEST PAIN [None]
  - CHILLS [None]
  - IMPAIRED HEALING [None]
  - LOWER RESPIRATORY TRACT INFECTION [None]
  - PYREXIA [None]
  - TOOTH DISORDER [None]
